FAERS Safety Report 8112691-2 (Version None)
Quarter: 2012Q1

REPORT INFORMATION
  Report Type: 
  Country: None (occurrence: None)
  Receive Date: 20120203
  Receipt Date: 20120125
  Transmission Date: 20120608
  Serious: Yes (Other)
  Sender: FDA-Public Use
  Company Number: US-ABBOTT-12P-163-0889920-00

PATIENT
  Sex: Male
  Weight: 79 kg

DRUGS (26)
  1. HUMIRA [Suspect]
     Indication: CROHN'S DISEASE
     Route: 058
     Dates: start: 20070601
  2. DEGARELIX [Suspect]
     Indication: PROSTATE CANCER
  3. DYAZIDE [Concomitant]
     Indication: PRODUCT USED FOR UNKNOWN INDICATION
  4. VICODIN [Concomitant]
     Indication: PRODUCT USED FOR UNKNOWN INDICATION
  5. DIPHENOXYLATE [Concomitant]
     Indication: CROHN'S DISEASE
     Dosage: 2.5 MG AS NEEDED, UP TO 4 DAILY
  6. DIOVAN [Concomitant]
     Indication: BLOOD PRESSURE ABNORMAL
  7. ASPIRIN [Concomitant]
     Indication: PRODUCT USED FOR UNKNOWN INDICATION
  8. CARDIZEM [Concomitant]
     Indication: PRODUCT USED FOR UNKNOWN INDICATION
  9. SYNTHROID [Concomitant]
     Indication: PRODUCT USED FOR UNKNOWN INDICATION
  10. LUPRON DEPOT [Concomitant]
     Indication: PRODUCT USED FOR UNKNOWN INDICATION
     Route: 058
  11. GLIPIZIDE [Concomitant]
     Indication: DIABETES MELLITUS
  12. LOVASTATIN [Concomitant]
     Indication: BLOOD CHOLESTEROL INCREASED
  13. LOMOTIL [Concomitant]
     Indication: PRODUCT USED FOR UNKNOWN INDICATION
  14. HYDROCHLOROTHIAZIDE [Concomitant]
     Indication: HYPERTENSION
     Dates: end: 20110501
  15. IRON [Concomitant]
     Indication: PRODUCT USED FOR UNKNOWN INDICATION
  16. MATURE MULTIVITAMINS [Concomitant]
     Indication: PRODUCT USED FOR UNKNOWN INDICATION
  17. CHONDROITIN W/GLUCOSAMINE [Concomitant]
     Indication: PRODUCT USED FOR UNKNOWN INDICATION
  18. LEVOTHYROXINE SODIUM [Concomitant]
     Indication: HYPOTHYROIDISM
  19. FIRMAGON INJECTION [Concomitant]
     Indication: PRODUCT USED FOR UNKNOWN INDICATION
  20. FISH OIL [Concomitant]
     Indication: PRODUCT USED FOR UNKNOWN INDICATION
     Dates: start: 20110601
  21. VITAMIN D [Concomitant]
     Indication: CROHN'S DISEASE
     Dosage: DAILY
  22. VITAMIN B-12 [Concomitant]
     Indication: PRODUCT USED FOR UNKNOWN INDICATION
     Dosage: DAILY
     Route: 060
  23. PENTASA [Concomitant]
     Indication: CROHN'S DISEASE
     Dosage: 10 TABS DAILY
  24. HYDROCODONE BITARTRATE [Concomitant]
     Indication: CROHN'S DISEASE
  25. ACTOS [Concomitant]
     Indication: DIABETES MELLITUS
  26. CALCIUM 600 + D [Concomitant]
     Indication: PRODUCT USED FOR UNKNOWN INDICATION
     Dosage: DAILY

REACTIONS (13)
  - DEVICE MALFUNCTION [None]
  - INTESTINAL MUCOSAL HYPERTROPHY [None]
  - DYSPNOEA [None]
  - PROSTATE CANCER METASTATIC [None]
  - CARDIAC STRESS TEST ABNORMAL [None]
  - CREPITATIONS [None]
  - INJECTION SITE MASS [None]
  - OEDEMA PERIPHERAL [None]
  - PERIARTHRITIS [None]
  - HYPOTENSION [None]
  - HOT FLUSH [None]
  - INCORRECT DOSE ADMINISTERED [None]
  - ERECTILE DYSFUNCTION [None]
